FAERS Safety Report 6527151-X (Version None)
Quarter: 2010Q1

REPORT INFORMATION
  Report Type: 
  Country: None (occurrence: None)
  Receive Date: 20100105
  Receipt Date: 20100104
  Transmission Date: 20100710
  Serious: Yes (Other)
  Sender: FDA-Public Use
  Company Number: A0817225A

PATIENT
  Age: 59 Year
  Sex: Female

DRUGS (4)
  1. ADVAIR DISKUS 100/50 [Suspect]
     Indication: ASTHMA
     Dosage: 1PUFF TWICE PER DAY
     Route: 055
     Dates: start: 20060101
  2. SYNTHROID [Concomitant]
  3. NABUMETONE [Concomitant]
  4. VITAMINS [Concomitant]

REACTIONS (4)
  - COUGH [None]
  - PHARYNGEAL HAEMORRHAGE [None]
  - PRODUCT QUALITY ISSUE [None]
  - THROAT IRRITATION [None]
